FAERS Safety Report 13413671 (Version 3)
Quarter: 2023Q1

REPORT INFORMATION
  Report Type: Spontaneous
  Country: US (occurrence: US)
  Receive Date: 20170406
  Receipt Date: 20230330
  Transmission Date: 20230417
  Serious: Yes (Other)
  Sender: FDA-Public Use
  Company Number: US-JNJFOC-20170312256

PATIENT
  Age: 3 Decade
  Sex: Male

DRUGS (17)
  1. RISPERDAL [Suspect]
     Active Substance: RISPERIDONE
     Indication: Schizophreniform disorder
     Route: 048
     Dates: start: 20100919, end: 20101115
  2. RISPERDAL [Suspect]
     Active Substance: RISPERIDONE
     Indication: Insomnia
     Route: 048
     Dates: start: 20110510, end: 20111028
  3. RISPERDAL [Suspect]
     Active Substance: RISPERIDONE
     Indication: Thinking abnormal
     Route: 048
     Dates: start: 20130918, end: 20140804
  4. RISPERDAL [Suspect]
     Active Substance: RISPERIDONE
     Indication: Bipolar disorder
  5. RISPERIDONE [Suspect]
     Active Substance: RISPERIDONE
     Indication: Schizophreniform disorder
     Dosage: IN VARYING DOSES OF 2 MG, 3 MG AND 4 MG
     Route: 048
     Dates: start: 20100921, end: 20111028
  6. RISPERIDONE [Suspect]
     Active Substance: RISPERIDONE
     Indication: Insomnia
  7. INVEGA [Suspect]
     Active Substance: PALIPERIDONE
     Indication: Schizophreniform disorder
     Route: 048
     Dates: start: 20130918, end: 20131027
  8. INVEGA [Suspect]
     Active Substance: PALIPERIDONE
     Indication: Insomnia
  9. INVEGA SUSTENNA [Suspect]
     Active Substance: PALIPERIDONE PALMITATE
     Indication: Schizophreniform disorder
     Dosage: IN VARYING DOSES OF 117MG/0.75ML AND 156 MG
     Route: 030
     Dates: start: 20131028, end: 20160223
  10. INVEGA SUSTENNA [Suspect]
     Active Substance: PALIPERIDONE PALMITATE
     Indication: Insomnia
  11. INVEGA SUSTENNA [Suspect]
     Active Substance: PALIPERIDONE PALMITATE
  12. INVEGA TRINZA [Suspect]
     Active Substance: PALIPERIDONE PALMITATE
     Indication: Schizophreniform disorder
     Route: 030
     Dates: start: 20160426, end: 20161115
  13. INVEGA TRINZA [Suspect]
     Active Substance: PALIPERIDONE PALMITATE
     Indication: Insomnia
  14. INVEGA TRINZA [Suspect]
     Active Substance: PALIPERIDONE PALMITATE
  15. LORAZEPAM [Suspect]
     Active Substance: LORAZEPAM
     Indication: Panic attack
     Route: 065
  16. LORAZEPAM [Suspect]
     Active Substance: LORAZEPAM
     Indication: Anxiety
  17. RISPERIDONE [Suspect]
     Active Substance: RISPERIDONE
     Indication: Product used for unknown indication
     Route: 065

REACTIONS (5)
  - Hyperprolactinaemia [Unknown]
  - Gynaecomastia [Unknown]
  - Obesity [Unknown]
  - Sedation [Unknown]
  - Emotional disorder [Unknown]

NARRATIVE: CASE EVENT DATE: 20110101
